FAERS Safety Report 12389897 (Version 1)
Quarter: 2016Q2

REPORT INFORMATION
  Report Type: Spontaneous
  Country: BR (occurrence: BR)
  Receive Date: 20160520
  Receipt Date: 20160520
  Transmission Date: 20160815
  Serious: Yes (Hospitalization, Other)
  Sender: FDA-Public Use
  Company Number: BR-JNJFOC-20160513612

PATIENT
  Age: 40 Year
  Sex: Female
  Weight: 107 kg

DRUGS (4)
  1. REMICADE [Suspect]
     Active Substance: INFLIXIMAB
     Indication: RHEUMATOID ARTHRITIS
     Route: 042
  2. ACTEMRA [Suspect]
     Active Substance: TOCILIZUMAB
     Indication: RHEUMATOID ARTHRITIS
     Route: 065
     Dates: start: 20151120
  3. ACTEMRA [Suspect]
     Active Substance: TOCILIZUMAB
     Indication: RHEUMATOID ARTHRITIS
     Route: 065
     Dates: start: 20140128
  4. REMICADE [Suspect]
     Active Substance: INFLIXIMAB
     Indication: RHEUMATOID ARTHRITIS
     Route: 042
     Dates: start: 20151120

REACTIONS (8)
  - Bacterial infection [Recovered/Resolved]
  - Hypertension [Unknown]
  - Pain [Unknown]
  - Osteoarthritis [Unknown]
  - Glucose tolerance impaired [Unknown]
  - Insomnia [Unknown]
  - Blister [Unknown]
  - Joint effusion [Unknown]

NARRATIVE: CASE EVENT DATE: 201505
